FAERS Safety Report 10186315 (Version 2)
Quarter: 2014Q2

REPORT INFORMATION
  Report Type: Spontaneous
  Country: US (occurrence: US)
  Receive Date: 20140521
  Receipt Date: 20140605
  Transmission Date: 20141212
  Serious: No
  Sender: FDA-Public Use
  Company Number: US-009507513-1405USA008602

PATIENT
  Sex: Female

DRUGS (3)
  1. OXYTROL FOR WOMEN [Suspect]
     Indication: HYPERTONIC BLADDER
     Dosage: UNK, UNKNOWN
     Route: 062
     Dates: start: 2013, end: 2014
  2. EXFORGE [Concomitant]
  3. BYSTOLIC [Concomitant]

REACTIONS (3)
  - Rash [Unknown]
  - Drug ineffective [Unknown]
  - Product adhesion issue [Unknown]
